FAERS Safety Report 15986836 (Version 1)
Quarter: 2019Q1

REPORT INFORMATION
  Report Type: Spontaneous
  Country: US (occurrence: US)
  Receive Date: 20190220
  Receipt Date: 20190220
  Transmission Date: 20190418
  Serious: No
  Sender: FDA-Public Use
  Company Number: US-GILEAD-2019-0390737

PATIENT
  Age: 22 Year
  Sex: Male

DRUGS (2)
  1. MEN^S DAILY ONE [Concomitant]
  2. TRUVADA [Suspect]
     Active Substance: EMTRICITABINE\TENOFOVIR DISOPROXIL FUMARATE
     Indication: EXPOSURE TO COMMUNICABLE DISEASE
     Dosage: 200-300 MG, UNK
     Route: 048
     Dates: start: 201811

REACTIONS (2)
  - Memory impairment [Unknown]
  - Intentional dose omission [Unknown]
